FAERS Safety Report 23606479 (Version 1)
Quarter: 2024Q1

REPORT INFORMATION
  Report Type: Spontaneous
  Country: IE (occurrence: IE)
  Receive Date: 20240307
  Receipt Date: 20240307
  Transmission Date: 20240410
  Serious: Yes (Other)
  Sender: FDA-Public Use
  Company Number: IE-INCYTE CORPORATION-2024IN002375

PATIENT

DRUGS (1)
  1. PEMAZYRE [Suspect]
     Active Substance: PEMIGATINIB
     Indication: Bladder cancer
     Dosage: UNK
     Route: 065

REACTIONS (3)
  - Bladder cancer [Unknown]
  - Disease progression [Unknown]
  - Off label use [Unknown]
